FAERS Safety Report 8334239-X (Version None)
Quarter: 2012Q2

REPORT INFORMATION
  Report Type: 
  Country: None (occurrence: None)
  Receive Date: 20120503
  Receipt Date: 20120427
  Transmission Date: 20120825
  Serious: Yes (Other)
  Sender: FDA-Public Use
  Company Number: JP-GLAXOSMITHKLINE-B0798849A

PATIENT
  Age: 75 Year
  Sex: Male

DRUGS (6)
  1. ZYPREXA [Concomitant]
     Route: 048
  2. EVAMYL [Concomitant]
     Route: 048
  3. CHINESE MEDICATION [Concomitant]
  4. ANTIHYPERTENSIVES [Concomitant]
     Route: 065
     Dates: end: 20111031
  5. PAXIL [Suspect]
     Indication: PRODUCT USED FOR UNKNOWN INDICATION
     Dosage: 30MG PER DAY
     Route: 048
     Dates: end: 20120411
  6. UNSPECIFIED MEDICATION [Concomitant]
     Indication: HYPERLIPIDAEMIA
     Route: 065

REACTIONS (4)
  - MYOCARDIAL INFARCTION [None]
  - DYSPHAGIA [None]
  - RESPIRATORY RATE INCREASED [None]
  - HYPOPNOEA [None]
